FAERS Safety Report 15248267 (Version 1)
Quarter: 2018Q3

REPORT INFORMATION
  Report Type: Report from Study
  Country: MX (occurrence: MX)
  Receive Date: 20180807
  Receipt Date: 20180807
  Transmission Date: 20181010
  Serious: Yes (Hospitalization, Other)
  Sender: FDA-Public Use
  Company Number: MX-ORION CORPORATION ORION PHARMA-ENTC2018-0240

PATIENT
  Age: 65 Year
  Sex: Male

DRUGS (2)
  1. STALEVO [Suspect]
     Active Substance: CARBIDOPA\ENTACAPONE\LEVODOPA
     Indication: PARKINSON^S DISEASE
     Dosage: STRENGTH: 125/31.25/200 MG
     Route: 048
     Dates: end: 201805
  2. EBIXA [Concomitant]
     Active Substance: MEMANTINE HYDROCHLORIDE
     Route: 065

REACTIONS (3)
  - Respiratory arrest [Unknown]
  - Obstructive airways disorder [Recovering/Resolving]
  - Dysphagia [Unknown]

NARRATIVE: CASE EVENT DATE: 20180101
